FAERS Safety Report 23763432 (Version 1)
Quarter: 2024Q2

REPORT INFORMATION
  Report Type: Spontaneous
  Country: US (occurrence: US)
  Receive Date: 20240419
  Receipt Date: 20240419
  Transmission Date: 20240717
  Serious: Yes (Other)
  Sender: FDA-Public Use
  Company Number: US-SA-SAC20240417001031

PATIENT
  Sex: Female

DRUGS (1)
  1. DUPIXENT [Suspect]
     Active Substance: DUPILUMAB
     Indication: Dermatitis atopic
     Dosage: 300 MG, QOW
     Route: 058
     Dates: start: 202008

REACTIONS (4)
  - Atrial fibrillation [Unknown]
  - Bradycardia [Unknown]
  - Post-acute COVID-19 syndrome [Unknown]
  - Supraventricular tachycardia [Unknown]
